FAERS Safety Report 10301074 (Version 3)
Quarter: 2014Q4

REPORT INFORMATION
  Report Type: Spontaneous
  Country: US (occurrence: US)
  Receive Date: 20140714
  Receipt Date: 20141125
  Transmission Date: 20150528
  Serious: Yes (Death, Hospitalization)
  Sender: FDA-Public Use
  Company Number: US-ACTELION-A-US2014-101709

PATIENT
  Age: 79 Year
  Sex: Female
  Weight: 88.44 kg

DRUGS (3)
  1. OPSUMIT [Suspect]
     Active Substance: MACITENTAN
     Indication: PULMONARY ARTERIAL HYPERTENSION
     Dosage: 10 MG, QD
     Route: 048
     Dates: start: 20140225, end: 20140625
  2. TYVASO [Suspect]
     Active Substance: TREPROSTINIL
     Indication: COR PULMONALE CHRONIC
     Dosage: UNK
     Route: 055
     Dates: start: 20140128, end: 20141028
  3. LETAIRIS [Concomitant]
     Active Substance: AMBRISENTAN

REACTIONS (8)
  - Fluid retention [Fatal]
  - Mobility decreased [Unknown]
  - Right ventricular failure [Fatal]
  - Dyspnoea [Unknown]
  - Fatigue [Unknown]
  - Weight decreased [Unknown]
  - Hypervolaemia [Fatal]
  - Hypotension [Fatal]

NARRATIVE: CASE EVENT DATE: 20140601
